FAERS Safety Report 19827164 (Version 1)
Quarter: 2021Q3

REPORT INFORMATION
  Report Type: Spontaneous
  Country: SK (occurrence: SK)
  Receive Date: 20210914
  Receipt Date: 20210914
  Transmission Date: 20211014
  Serious: Yes (Other)
  Sender: FDA-Public Use
  Company Number: SK-B.I. PHARMACEUTICALS,INC./RIDGEFIELD-2019-BI-020565

PATIENT
  Age: 77 Year
  Sex: Female

DRUGS (1)
  1. GILOTRIF [Suspect]
     Active Substance: AFATINIB
     Indication: NON-SMALL CELL LUNG CANCER
     Route: 048
     Dates: start: 20181210, end: 201906

REACTIONS (10)
  - Weight decreased [Unknown]
  - Diarrhoea [Recovered/Resolved]
  - Skin fissures [Recovering/Resolving]
  - Deep vein thrombosis [Unknown]
  - Stomatitis [Recovered/Resolved]
  - Conjunctivitis [Recovered/Resolved]
  - Cough [Unknown]
  - Paronychia [Recovering/Resolving]
  - Decreased appetite [Unknown]
  - Malignant neoplasm progression [Unknown]

NARRATIVE: CASE EVENT DATE: 201812
